FAERS Safety Report 7698720-9 (Version None)
Quarter: 2011Q3

REPORT INFORMATION
  Report Type: 
  Country: None (occurrence: None)
  Receive Date: 20110819
  Receipt Date: 20110815
  Transmission Date: 20111222
  Serious: Yes (Death, Hospitalization)
  Sender: FDA-Public Use
  Company Number: US-ABBOTT-09P-163-0581209-00

PATIENT
  Sex: Male
  Weight: 106 kg

DRUGS (7)
  1. NEPHRO CAPS [Concomitant]
     Indication: MULTI-VITAMIN DEFICIENCY
  2. COREG [Concomitant]
     Indication: HYPERTENSION
  3. ISOSORBIDE DINITRATE [Concomitant]
     Indication: HYPERTENSION
  4. ZEMPLAR [Suspect]
     Indication: HYPERPARATHYROIDISM
     Route: 042
     Dates: start: 20090409, end: 20090620
  5. ASPIRIN [Concomitant]
     Indication: PRODUCT USED FOR UNKNOWN INDICATION
  6. COZAAR [Concomitant]
     Indication: HYPERTENSION
  7. PHOSLO [Concomitant]
     Indication: BLOOD PHOSPHORUS INCREASED

REACTIONS (10)
  - CARDIAC ARREST [None]
  - KIDNEY TRANSPLANT REJECTION [None]
  - CARDIAC FAILURE CONGESTIVE [None]
  - PYREXIA [None]
  - MALAISE [None]
  - CHILLS [None]
  - HAEMATOCRIT DECREASED [None]
  - HYPERTENSIVE HEART DISEASE [None]
  - PULMONARY OEDEMA [None]
  - CARDIOMEGALY [None]
